FAERS Safety Report 7807767-0 (Version None)
Quarter: 2011Q4

REPORT INFORMATION
  Report Type: 
  Country: None (occurrence: None)
  Receive Date: 20111011
  Receipt Date: 20111003
  Transmission Date: 20120403
  Serious: Yes (Hospitalization)
  Sender: FDA-Public Use
  Company Number: US-NOVOPROD-336387

PATIENT

DRUGS (2)
  1. NOVOLOG MIX 70/30 [Suspect]
     Indication: TYPE 2 DIABETES MELLITUS
     Dosage: 30 U, BID
     Route: 058
     Dates: start: 20070101, end: 20110801
  2. NOVOLOG MIX 70/30 [Suspect]
     Dosage: 70 U, BID
     Route: 058
     Dates: start: 20110801

REACTIONS (4)
  - DYSURIA [None]
  - GENERALISED OEDEMA [None]
  - DIABETIC HYPERGLYCAEMIC COMA [None]
  - BLOOD GLUCOSE INCREASED [None]
